FAERS Safety Report 9251365 (Version 2)
Quarter: 2013Q2

REPORT INFORMATION
  Report Type: Spontaneous
  Country: CN (occurrence: CN)
  Receive Date: 20130424
  Receipt Date: 20130501
  Transmission Date: 20140414
  Serious: Yes (Death, Hospitalization, Other)
  Sender: FDA-Public Use
  Company Number: CN-PFIZER INC-2013124259

PATIENT
  Age: 69 Year
  Sex: Female

DRUGS (1)
  1. CELECOXIB [Suspect]
     Indication: OSTEONECROSIS
     Dosage: 1 DF, UNK
     Route: 048
     Dates: start: 201304

REACTIONS (6)
  - Death [Fatal]
  - Cardiac disorder [Unknown]
  - Arteriosclerosis coronary artery [Unknown]
  - Cardiac failure [Unknown]
  - Renal failure [Unknown]
  - Confusional state [Unknown]
